FAERS Safety Report 18775452 (Version 1)
Quarter: 2021Q1

REPORT INFORMATION
  Report Type: Spontaneous
  Country: US (occurrence: US)
  Receive Date: 20210122
  Receipt Date: 20210122
  Transmission Date: 20210419
  Serious: No
  Sender: FDA-Public Use
  Company Number: US-BRISTOL-MYERS SQUIBB COMPANY-BMS-2021-000351

PATIENT
  Sex: Female

DRUGS (1)
  1. REYATAZ [Suspect]
     Active Substance: ATAZANAVIR SULFATE
     Indication: COVID-19
     Dosage: DAILY FOR 10 DAYS
     Route: 048
     Dates: start: 2020

REACTIONS (2)
  - Intentional product use issue [Unknown]
  - Therapeutic response unexpected [Unknown]
